FAERS Safety Report 13745205 (Version 3)
Quarter: 2017Q4

REPORT INFORMATION
  Report Type: Spontaneous
  Country: US (occurrence: US)
  Receive Date: 20170712
  Receipt Date: 20171218
  Transmission Date: 20180320
  Serious: Yes (Other)
  Sender: FDA-Public Use
  Company Number: US-009507513-1706USA010444

PATIENT
  Age: 68 Year
  Sex: Male

DRUGS (7)
  1. GABAPENTIN. [Concomitant]
     Active Substance: GABAPENTIN
     Indication: PERIPHERAL SENSORY NEUROPATHY
     Dosage: 300MG ONCE DAILY
  2. SINEMET [Suspect]
     Active Substance: CARBIDOPA\LEVODOPA
     Dosage: CONTINUOUS INFUSION RATE WAS BROUGHT DOWN TO 1.4CC/H (WITH SERIES OF TITRATIONS)
     Route: 050
  3. SINEMET [Suspect]
     Active Substance: CARBIDOPA\LEVODOPA
     Indication: PARKINSON^S DISEASE
     Dosage: 4-6 TABLETS CRUSHED AND INFUSED THREE TIMES A DAY OVER 4 HOURS THROUGH A G-TUBE
     Route: 050
  4. AMANTADINE. [Concomitant]
     Active Substance: AMANTADINE HYDROCHLORIDE
     Indication: PARKINSON^S DISEASE
     Dosage: 100MG THREE TIMES A DAY
  5. GABAPENTIN. [Concomitant]
     Active Substance: GABAPENTIN
     Dosage: 600MG TWO TIMES A DAY
  6. SINEMET [Suspect]
     Active Substance: CARBIDOPA\LEVODOPA
     Dosage: CONTINUOUS RATE WAS REDUCED TO 2.5CC/H
     Route: 050
  7. SINEMET [Suspect]
     Active Substance: CARBIDOPA\LEVODOPA
     Dosage: LOCK LEVEL I, 3.0 CC/H, LOCK OUT 2 HOURS, EXTRA DOSE 1.5 CC AND MORNING DOSE 9 CC
     Route: 050

REACTIONS (3)
  - Neurotoxicity [Unknown]
  - Wrong technique in product usage process [Unknown]
  - Neuralgia [Recovering/Resolving]
